FAERS Safety Report 14683988 (Version 1)
Quarter: 2018Q1

REPORT INFORMATION
  Report Type: Spontaneous
  Country: GB (occurrence: GB)
  Receive Date: 20180327
  Receipt Date: 20180327
  Transmission Date: 20180509
  Serious: Yes (Life-Threatening)
  Sender: FDA-Public Use
  Company Number: GB-ALLERGAN-1815950US

PATIENT
  Age: 46 Year
  Sex: Female
  Weight: 70 kg

DRUGS (2)
  1. ACAMPROSATE CALCIUM - BP [Suspect]
     Active Substance: ACAMPROSATE CALCIUM
     Indication: ALCOHOLISM
     Dosage: 16 DF (OVERDOSE), UNK
     Route: 065
     Dates: start: 20171217, end: 20171217
  2. ACAMPROSATE CALCIUM - BP [Suspect]
     Active Substance: ACAMPROSATE CALCIUM
     Dosage: 333 MG, UNK
     Route: 065
     Dates: end: 20171217

REACTIONS (4)
  - Alcohol interaction [Unknown]
  - Overdose [Unknown]
  - Suicide attempt [Recovered/Resolved]
  - Suicidal ideation [Recovered/Resolved]

NARRATIVE: CASE EVENT DATE: 20171217
